FAERS Safety Report 8830700 (Version 1)
Quarter: 2012Q4

REPORT INFORMATION
  Report Type: Report from Study
  Country: US (occurrence: US)
  Receive Date: 20121009
  Receipt Date: 20121009
  Transmission Date: 20130627
  Serious: Yes (Hospitalization)
  Sender: FDA-Public Use
  Company Number: US-JNJFOC-20120913211

PATIENT
  Sex: Male
  Weight: 81.65 kg

DRUGS (10)
  1. REMICADE [Suspect]
     Indication: RHEUMATOID ARTHRITIS
     Route: 042
     Dates: start: 201208
  2. REMICADE [Suspect]
     Indication: RHEUMATOID ARTHRITIS
     Route: 042
     Dates: start: 201108, end: 201112
  3. REMICADE [Suspect]
     Indication: RHEUMATOID ARTHRITIS
     Route: 042
     Dates: start: 201112, end: 201208
  4. METHOTREXATE [Concomitant]
     Indication: RHEUMATOID ARTHRITIS
     Route: 065
  5. PREDNISONE [Concomitant]
     Indication: RHEUMATOID ARTHRITIS
     Route: 048
  6. CITALOPRAM [Concomitant]
     Indication: DEPRESSION
     Route: 048
  7. SIMVASTATIN [Concomitant]
     Indication: BLOOD CHOLESTEROL
     Route: 048
  8. TRAMADOL [Concomitant]
     Indication: PAIN
     Route: 048
     Dates: start: 201208
  9. GABAPENTIN [Concomitant]
     Indication: PAIN
     Dosage: 300 mg two-three times a day
     Route: 048
  10. ASPIRIN [Concomitant]
     Route: 048

REACTIONS (6)
  - Cerebrovascular accident [Not Recovered/Not Resolved]
  - Blindness [Not Recovered/Not Resolved]
  - Memory impairment [Not Recovered/Not Resolved]
  - Drug ineffective [Not Recovered/Not Resolved]
  - Pain [Not Recovered/Not Resolved]
  - Pain in jaw [Not Recovered/Not Resolved]
